FAERS Safety Report 9879391 (Version 1)
Quarter: 2014Q1

REPORT INFORMATION
  Report Type: Spontaneous
  Country: FR (occurrence: FR)
  Receive Date: 20140206
  Receipt Date: 20140206
  Transmission Date: 20141002
  Serious: Yes (Hospitalization)
  Sender: FDA-Public Use
  Company Number: FR-B.I. PHARMACEUTICALS,INC./RIDGEFIELD-2014-BI-05152FF

PATIENT
  Age: 62 Year
  Sex: Male

DRUGS (7)
  1. PRADAXA [Suspect]
     Indication: ATRIAL FIBRILLATION
  2. TAHOR [Concomitant]
  3. OMEXEL [Concomitant]
  4. LASILIX 120 [Concomitant]
  5. DIFFU K [Concomitant]
  6. CARDENSIEL [Concomitant]
  7. CORDARONE [Concomitant]

REACTIONS (3)
  - Tibia fracture [Recovered/Resolved]
  - Malaise [Recovered/Resolved]
  - Contraindication to medical treatment [Unknown]
